FAERS Safety Report 13725859 (Version 1)
Quarter: 2017Q3

REPORT INFORMATION
  Report Type: Spontaneous
  Country: KG (occurrence: KG)
  Receive Date: 20170707
  Receipt Date: 20170707
  Transmission Date: 20171127
  Serious: Yes (Death, Other)
  Sender: FDA-Public Use
  Company Number: KG-JNJFOC-20170702931

PATIENT
  Sex: Male
  Weight: 41 kg

DRUGS (21)
  1. CAPREOMYCIN [Concomitant]
     Active Substance: CAPREOMYCIN
     Indication: TUBERCULOSIS
     Route: 030
     Dates: start: 20160727, end: 20170127
  2. PROTIONAMIDE [Concomitant]
     Active Substance: PROTIONAMIDE
     Indication: TUBERCULOSIS
     Route: 048
     Dates: start: 20160727, end: 20170127
  3. PREDNISOLONE. [Concomitant]
     Active Substance: PREDNISOLONE
     Indication: HYPOTENSION
     Route: 048
     Dates: start: 20170127, end: 20170210
  4. POLYGLUCIN [Concomitant]
     Indication: ELECTROLYTE IMBALANCE
     Dosage: DOSE: 400 (UNITS NOT REPORTED)
     Route: 041
     Dates: start: 20170206, end: 20170210
  5. BEDAQUILINE [Suspect]
     Active Substance: BEDAQUILINE
     Indication: TUBERCULOSIS
     Route: 048
     Dates: start: 20170206, end: 20170210
  6. LACTATED RINGERS [Concomitant]
     Active Substance: CALCIUM CHLORIDE\POTASSIUM CHLORIDE\SODIUM CHLORIDE\SODIUM LACTATE
     Indication: ELECTROLYTE IMBALANCE
     Route: 042
     Dates: start: 20170127, end: 20170128
  7. NACL [Concomitant]
     Active Substance: SODIUM CHLORIDE
     Indication: HYPOPHAGIA
     Route: 042
     Dates: start: 20170128, end: 20170130
  8. SODIUM PARA AMINOSALICYLATE [Concomitant]
     Indication: TUBERCULOSIS
     Route: 048
     Dates: start: 20160727, end: 20170127
  9. MOXIFLOXACIN. [Concomitant]
     Active Substance: MOXIFLOXACIN
     Indication: TUBERCULOSIS
     Route: 048
     Dates: start: 20160727, end: 20170210
  10. AMOXICILLIN SODIUM W/CLAVULANATE POTASSIUM [Concomitant]
     Active Substance: AMOXICILLIN\CLAVULANATE POTASSIUM
     Indication: TUBERCULOSIS
     Route: 048
     Dates: start: 20170128, end: 20170210
  11. GLUCOSE [Concomitant]
     Active Substance: DEXTROSE
     Indication: HYPOTENSION
     Route: 041
     Dates: start: 20170127, end: 20170129
  12. ASCORBIC ACID. [Concomitant]
     Active Substance: ASCORBIC ACID
     Indication: ASTHENIA
     Route: 042
     Dates: start: 20170127, end: 20170129
  13. VEROSPIRONE [Concomitant]
     Indication: OEDEMA PERIPHERAL
     Dosage: DOSE: 50 (UNITS NOT REPORTED)
     Route: 048
     Dates: start: 20170206, end: 20170210
  14. IMIPENEM AND CILASTATIN [Concomitant]
     Active Substance: CILASTATIN SODIUM\IMIPENEM
     Indication: TUBERCULOSIS
     Route: 042
     Dates: start: 20170131, end: 20170210
  15. CYCLOSERIN [Concomitant]
     Active Substance: CYCLOSERINE
     Indication: TUBERCULOSIS
     Route: 048
     Dates: start: 20160727, end: 20170127
  16. PARA-AMINOSALICYLIC ACID [Concomitant]
     Active Substance: AMINOSALICYLIC ACID
     Indication: TUBERCULOSIS
     Route: 048
     Dates: start: 20160727, end: 20170127
  17. PYRAZINAMIDE. [Concomitant]
     Active Substance: PYRAZINAMIDE
     Indication: TUBERCULOSIS
     Route: 048
     Dates: start: 20161003, end: 20170127
  18. NACL [Concomitant]
     Active Substance: SODIUM CHLORIDE
     Indication: HYPOTENSION
     Route: 042
     Dates: start: 20170128, end: 20170130
  19. CLOFAZIMINE [Concomitant]
     Active Substance: CLOFAZIMINE
     Indication: TUBERCULOSIS
     Route: 048
     Dates: start: 20161110, end: 20170210
  20. LINEZOLID. [Concomitant]
     Active Substance: LINEZOLID
     Indication: TUBERCULOSIS
     Route: 048
     Dates: start: 20160127, end: 20170210
  21. POTASSIUM OROTATE [Concomitant]
     Indication: HYPOKALAEMIA
     Route: 048
     Dates: start: 20170130, end: 20170210

REACTIONS (2)
  - Tuberculosis [Unknown]
  - Death [Fatal]
